FAERS Safety Report 24062186 (Version 2)
Quarter: 2024Q3

REPORT INFORMATION
  Report Type: Spontaneous
  Country: CZ (occurrence: CZ)
  Receive Date: 20240708
  Receipt Date: 20240715
  Transmission Date: 20241016
  Serious: Yes (Other)
  Sender: BAUSCH AND LOMB
  Company Number: CZ-BAUSCH-BL-2024-010260

PATIENT
  Age: 27 Year
  Sex: Male

DRUGS (4)
  1. DICLOFENAC [Suspect]
     Active Substance: DICLOFENAC
     Indication: Ankylosing spondylitis
     Route: 065
  2. NIMESULIDE [Suspect]
     Active Substance: NIMESULIDE
     Indication: Back pain
     Dosage: IRREGULARLY USED 1-2 TIMES A DAY
     Route: 065
  3. NIMESULIDE [Suspect]
     Active Substance: NIMESULIDE
     Dosage: 1-2 TIMES A DAY.
     Route: 065
  4. IBUPROFEN [Suspect]
     Active Substance: IBUPROFEN
     Indication: Back pain
     Dosage: IRREGULARLY USED
     Route: 065

REACTIONS (3)
  - Liver disorder [Recovering/Resolving]
  - Condition aggravated [Recovering/Resolving]
  - Therapy partial responder [Unknown]
